FAERS Safety Report 8601570-X (Version None)
Quarter: 2012Q3

REPORT INFORMATION
  Report Type: 
  Country: None (occurrence: None)
  Receive Date: 20120817
  Receipt Date: 20120209
  Transmission Date: 20120928
  Serious: Yes (Other)
  Sender: FDA-Public Use
  Company Number: US-BRISTOL-MYERS SQUIBB COMPANY-16266397

PATIENT
  Age: 66 Year
  Sex: Female

DRUGS (2)
  1. SPRYCEL [Suspect]
     Indication: CHRONIC MYELOID LEUKAEMIA
     Dosage: LAST DOSE:24OCT2011. RESTARTED ON 30NOV2011.
     Route: 048
  2. VITAMIN D [Concomitant]

REACTIONS (1)
  - THROMBOCYTOPENIA [None]
